FAERS Safety Report 6895228-5 (Version None)
Quarter: 2010Q3

REPORT INFORMATION
  Report Type: 
  Country: None (occurrence: None)
  Receive Date: 20100802
  Receipt Date: 20100722
  Transmission Date: 20110219
  Serious: Yes (Other)
  Sender: FDA-Public Use
  Company Number: PHHY2010GB13749

PATIENT
  Sex: Male

DRUGS (11)
  1. CLOZARIL [Suspect]
     Indication: SCHIZOPHRENIA
     Dosage: 125 MG MANE AND 200 MG NOCTE
     Route: 048
     Dates: start: 20100115
  2. CLOZARIL [Suspect]
     Dosage: 125 MG MANE AND 225 MG NOCTE
     Route: 048
  3. CITALOPRAM HYDROBROMIDE [Concomitant]
     Indication: OBSESSIVE-COMPULSIVE DISORDER
     Dosage: 40 MG DAILY
     Route: 048
  4. CITALOPRAM HYDROBROMIDE [Concomitant]
     Indication: DEPRESSION
  5. DIAZEPAM [Concomitant]
  6. DRUG THERAPY NOS [Concomitant]
     Indication: ACNE
  7. LYMECYCLINE [Concomitant]
     Indication: ACNE
     Dosage: 408 MG, DAILY
     Route: 048
  8. ZINERYT [Concomitant]
     Indication: ACNE
     Dosage: SMALL AMOUNT
     Route: 061
  9. DIFFERIN [Concomitant]
     Indication: ACNE
     Dosage: 0.17, SMALL AMOUNT
  10. HYOSCINE HBR HYT [Concomitant]
     Indication: SALIVARY HYPERSECRETION
     Dosage: 300 UG, UNK
     Route: 048
  11. ARIPIPRAZOLE [Concomitant]
     Indication: PSYCHOTIC DISORDER
     Dosage: 15 MG, UNK
     Route: 048

REACTIONS (4)
  - ANTIPSYCHOTIC DRUG LEVEL BELOW THERAPEUTIC [None]
  - BLOOD ALKALINE PHOSPHATASE DECREASED [None]
  - TACHYCARDIA [None]
  - VISION BLURRED [None]
